FAERS Safety Report 7402322-9 (Version None)
Quarter: 2011Q1

REPORT INFORMATION
  Report Type: 
  Country: None (occurrence: None)
  Receive Date: 20110330
  Receipt Date: 20110318
  Transmission Date: 20110831
  Serious: Yes (Death, Other)
  Sender: FDA-Public Use
  Company Number: 2011MA002927

PATIENT
  Age: 87 Year
  Sex: Male

DRUGS (3)
  1. COLCHICINE [Suspect]
     Indication: INFLAMMATION
  2. DIHYDROCODEINE (DIHYDROCODEINE) [Suspect]
     Indication: INFLAMMATION
  3. TRAMADOL HYDROCHLORIDE [Suspect]
     Indication: INFLAMMATION
     Dosage: 50 MG;

REACTIONS (2)
  - MYOCARDIAL INFARCTION [None]
  - CARDIAC FAILURE CONGESTIVE [None]
